FAERS Safety Report 7090627-3 (Version None)
Quarter: 2010Q4

REPORT INFORMATION
  Report Type: 
  Country: None (occurrence: None)
  Receive Date: 20101012
  Receipt Date: 20100310
  Transmission Date: 20110411
  Serious: Yes (Other)
  Sender: FDA-Public Use
  Company Number: 1000012423

PATIENT
  Sex: Female

DRUGS (2)
  1. LEXAPRO [Suspect]
     Dosage: ORAL
     Route: 048
  2. DEPLIN [Suspect]

REACTIONS (1)
  - SEROTONIN SYNDROME [None]
